FAERS Safety Report 11303678 (Version 1)
Quarter: 2015Q3

REPORT INFORMATION
  Report Type: Spontaneous
  Country: US (occurrence: US)
  Receive Date: 20150723
  Receipt Date: 20150723
  Transmission Date: 20151125
  Serious: No
  Sender: FDA-Public Use
  Company Number: US-JNJFOC-20140909076

PATIENT
  Age: 40 Year
  Sex: Female
  Weight: 67.13 kg

DRUGS (4)
  1. ZYRTEC 10MG IR TABLET [Suspect]
     Active Substance: CETIRIZINE HYDROCHLORIDE
     Indication: SINUSITIS
     Dosage: 1/2 - 1 TABLET
     Route: 048
     Dates: start: 20140822, end: 20140907
  2. ZYRTEC 10MG IR TABLET [Suspect]
     Active Substance: CETIRIZINE HYDROCHLORIDE
     Indication: SEASONAL ALLERGY
     Dosage: 1/2 - 1 TABLET
     Route: 048
     Dates: start: 20140822, end: 20140907
  3. MAGNESIUM [Concomitant]
     Active Substance: MAGNESIUM
     Indication: NUTRITIONAL SUPPLEMENTATION
     Route: 065
  4. UNKNOWN MEDICATION [Concomitant]
     Active Substance: UNSPECIFIED INGREDIENT
     Indication: ABNORMAL FAECES
     Route: 065

REACTIONS (5)
  - Anger [Recovering/Resolving]
  - Incorrect dose administered [Unknown]
  - Feeling of despair [Recovering/Resolving]
  - Depressed mood [Recovering/Resolving]
  - Micturition urgency [Recovering/Resolving]

NARRATIVE: CASE EVENT DATE: 20140825
